FAERS Safety Report 5050843-9 (Version None)
Quarter: 2006Q3

REPORT INFORMATION
  Report Type: 
  Country: None (occurrence: None)
  Receive Date: 20060710
  Receipt Date: 20060623
  Transmission Date: 20061208
  Serious: Yes (Other)
  Sender: FDA-Public Use
  Company Number: CHNY2006JP01932

PATIENT
  Age: 64 Year
  Sex: Male

DRUGS (1)
  1. NICOTINELL [Suspect]
     Dosage: QD, TRANSDERMAL
     Route: 062
     Dates: start: 20060601

REACTIONS (6)
  - BLOOD CREATINE PHOSPHOKINASE INCREASED [None]
  - MALAISE [None]
  - PYREXIA [None]
  - RASH [None]
  - RASH GENERALISED [None]
  - RASH VESICULAR [None]
